FAERS Safety Report 14224538 (Version 2)
Quarter: 2017Q4

REPORT INFORMATION
  Report Type: Report from Study
  Country: DE (occurrence: DE)
  Receive Date: 20171127
  Receipt Date: 20171128
  Transmission Date: 20180321
  Serious: Yes (Death, Other)
  Sender: FDA-Public Use
  Company Number: DE-ROCHE-1699750

PATIENT
  Age: 75 Year
  Sex: Male
  Weight: 71 kg

DRUGS (6)
  1. METOPROLOL. [Concomitant]
     Active Substance: METOPROLOL
     Indication: HYPERTENSION
     Route: 048
     Dates: end: 20160413
  2. TORASEMID [Concomitant]
     Active Substance: TORSEMIDE
     Indication: CHRONIC KIDNEY DISEASE
     Route: 048
     Dates: end: 20160413
  3. DIGIMERCK [Concomitant]
     Active Substance: DIGITOXIN
     Indication: ATRIAL FIBRILLATION
     Route: 048
     Dates: end: 20160413
  4. FERROSANOL [Concomitant]
     Active Substance: FERROUS GLUCONATE
     Indication: ANAEMIA
     Route: 048
     Dates: end: 20160413
  5. VISMODEGIB. [Suspect]
     Active Substance: VISMODEGIB
     Indication: BASAL CELL CARCINOMA
     Route: 048
     Dates: start: 20140513, end: 20160413
  6. TAMSULOSIN [Concomitant]
     Active Substance: TAMSULOSIN
     Indication: BENIGN PROSTATIC HYPERPLASIA
     Route: 048
     Dates: end: 20160413

REACTIONS (15)
  - Colon cancer metastatic [Fatal]
  - Decreased appetite [Recovered/Resolved]
  - Vomiting [Unknown]
  - Infected dermal cyst [Recovered/Resolved]
  - Nausea [Unknown]
  - Fatigue [Unknown]
  - Dysgeusia [Unknown]
  - Abnormal loss of weight [Unknown]
  - Tumour pain [Recovered/Resolved]
  - Sebaceous gland infection [Recovered/Resolved]
  - Dizziness [Recovered/Resolved]
  - Nerve compression [Unknown]
  - Lung neoplasm [Unknown]
  - Xeroderma [Unknown]
  - Fall [Unknown]

NARRATIVE: CASE EVENT DATE: 20140513
